FAERS Safety Report 8116586-X (Version None)
Quarter: 2012Q1

REPORT INFORMATION
  Report Type: 
  Country: None (occurrence: None)
  Receive Date: 20120206
  Receipt Date: 20120201
  Transmission Date: 20120608
  Serious: Yes (Death)
  Sender: FDA-Public Use
  Company Number: US-PFIZER INC-2011000383

PATIENT
  Age: 76 Year
  Sex: Female

DRUGS (8)
  1. SIMVASTATIN [Suspect]
     Indication: COMPLETED SUICIDE
     Route: 048
  2. METHADONE HCL [Suspect]
     Indication: COMPLETED SUICIDE
     Route: 048
  3. PANTOPRAZOLE [Suspect]
     Indication: COMPLETED SUICIDE
     Route: 048
  4. FUROSEMIDE [Suspect]
     Route: 048
  5. AMPHETAMINES [Suspect]
     Indication: COMPLETED SUICIDE
     Route: 048
  6. ALPRAZOLAM [Suspect]
     Indication: COMPLETED SUICIDE
     Route: 048
  7. LEVOXYL [Suspect]
     Indication: COMPLETED SUICIDE
     Dosage: 25 UG, UNK
     Route: 048
  8. ACETAMINOPHEN AND HYDROCODONE BITARTRATE [Suspect]
     Indication: COMPLETED SUICIDE
     Route: 048

REACTIONS (1)
  - COMPLETED SUICIDE [None]
